FAERS Safety Report 25529651 (Version 1)
Quarter: 2025Q3

REPORT INFORMATION
  Report Type: Spontaneous
  Country: US (occurrence: None)
  Receive Date: 20250708
  Receipt Date: 20250708
  Transmission Date: 20251020
  Serious: Yes (Other)
  Sender: FDA-CTU
  Company Number: None

PATIENT
  Sex: Male

DRUGS (11)
  1. LENALIDOMIDE [Suspect]
     Active Substance: LENALIDOMIDE
     Indication: Prostate cancer
     Route: 048
     Dates: start: 20250307
  2. ACETAMINOPHE [Concomitant]
  3. ALBUTEROL AER HFA [Concomitant]
  4. ATORVASTATIN [Concomitant]
     Active Substance: ATORVASTATIN
  5. DARZALEX SOL [Concomitant]
  6. DEXAMETHASON POW ACETATE [Concomitant]
  7. GABAPENTI N [Concomitant]
  8. LENALIDOMIDE [Concomitant]
     Active Substance: LENALIDOMIDE
  9. LOSARTAN POTASSIUM [Concomitant]
     Active Substance: LOSARTAN POTASSIUM
  10. MELOXICAM [Concomitant]
     Active Substance: MELOXICAM
  11. OXYCODONE [Concomitant]
     Active Substance: OXYCODONE

REACTIONS (1)
  - Peripheral swelling [None]
